FAERS Safety Report 14123004 (Version 1)
Quarter: 2017Q4

REPORT INFORMATION
  Report Type: Spontaneous
  Country: US (occurrence: US)
  Receive Date: 20171024
  Receipt Date: 20171024
  Transmission Date: 20180321
  Serious: Yes (Life-Threatening, Disabling, Other)
  Sender: FDA-Public Use
  Company Number: None

PATIENT

DRUGS (1)
  1. BENZEDREX [Suspect]
     Active Substance: PROPYLHEXEDRINE
     Indication: DEPENDENCE
     Route: 048

REACTIONS (1)
  - Drug abuse [None]

NARRATIVE: CASE EVENT DATE: 20171017
